FAERS Safety Report 21052158 (Version 1)
Quarter: 2022Q3

REPORT INFORMATION
  Report Type: Report from Study
  Country: US (occurrence: US)
  Receive Date: 20220707
  Receipt Date: 20220707
  Transmission Date: 20221026
  Serious: Yes (Other)
  Sender: FDA-Public Use
  Company Number: US-BRISTOL-MYERS SQUIBB COMPANY-2022-063888

PATIENT
  Age: 61 Year
  Sex: Male

DRUGS (1)
  1. ELIQUIS [Suspect]
     Active Substance: APIXABAN
     Indication: Embolism venous
     Route: 048
     Dates: start: 2019, end: 20220614

REACTIONS (6)
  - Upper-airway cough syndrome [Unknown]
  - Hypothyroidism [Unknown]
  - COVID-19 [Unknown]
  - Blood pressure increased [Unknown]
  - Nervous system disorder [Unknown]
  - Condition aggravated [Unknown]
